FAERS Safety Report 6916952-1 (Version None)
Quarter: 2010Q3

REPORT INFORMATION
  Report Type: 
  Country: None (occurrence: None)
  Receive Date: 20100810
  Receipt Date: 20100730
  Transmission Date: 20110219
  Serious: Yes (Hospitalization)
  Sender: FDA-Public Use
  Company Number: A0790207A

PATIENT
  Age: 63 Year
  Sex: Male
  Weight: 83.6 kg

DRUGS (6)
  1. AVANDIA [Suspect]
     Dosage: 4MG PER DAY
     Route: 048
     Dates: start: 19991101, end: 20040601
  2. ASPIRIN [Concomitant]
  3. ALTACE [Concomitant]
  4. PRAVACHOL [Concomitant]
  5. GLYNASE [Concomitant]
  6. TOPROL-XL [Concomitant]

REACTIONS (3)
  - CARDIAC FAILURE CONGESTIVE [None]
  - MYOCARDIAL ISCHAEMIA [None]
  - SILENT MYOCARDIAL INFARCTION [None]
